FAERS Safety Report 12562042 (Version 2)
Quarter: 2019Q4

REPORT INFORMATION
  Report Type: Spontaneous
  Country: JP (occurrence: JP)
  Receive Date: 20160715
  Receipt Date: 20191010
  Transmission Date: 20200122
  Serious: Yes (Hospitalization)
  Sender: FDA-Public Use
  Company Number: JP-ACTELION-A-CH2016-139159

PATIENT
  Age: 87 Year
  Sex: Female

DRUGS (8)
  1. OXYGEN. [Concomitant]
     Active Substance: OXYGEN
  2. TADALAFIL. [Concomitant]
     Active Substance: TADALAFIL
  3. DOBUTAMINE [Concomitant]
     Active Substance: DOBUTAMINE HYDROCHLORIDE
  4. TRACLEER [Suspect]
     Active Substance: BOSENTAN
     Indication: PULMONARY ARTERIAL HYPERTENSION
     Dosage: 125 MG, QD
     Route: 048
  5. EPOPROSTENOL ACT [Suspect]
     Active Substance: EPOPROSTENOL
     Indication: PULMONARY ARTERIAL HYPERTENSION
     Dosage: 0.6 NG/KG, PER MIN
     Route: 042
  6. PROCYLIN [Concomitant]
     Active Substance: BERAPROST SODIUM
  7. WARFARIN [Concomitant]
     Active Substance: WARFARIN
  8. LASIX [Concomitant]
     Active Substance: FUROSEMIDE

REACTIONS (9)
  - Pulmonary congestion [Recovering/Resolving]
  - Condition aggravated [Unknown]
  - Therapeutic product effect incomplete [Unknown]
  - PO2 abnormal [Recovering/Resolving]
  - Dyspnoea [Unknown]
  - Pulmonary arterial hypertension [Unknown]
  - Cardiac output decreased [Unknown]
  - Pulmonary veno-occlusive disease [Recovering/Resolving]
  - Oxygen saturation decreased [Recovering/Resolving]
